FAERS Safety Report 5093627-8 (Version None)
Quarter: 2006Q3

REPORT INFORMATION
  Report Type: 
  Country: None (occurrence: None)
  Receive Date: 20060829
  Receipt Date: 20060814
  Transmission Date: 20061208
  Serious: Yes (Other)
  Sender: FDA-Public Use
  Company Number: 2992

PATIENT
  Age: 19 Year
  Sex: Female
  Weight: 68.0396 kg

DRUGS (2)
  1. AMNESTEEM [Suspect]
     Indication: ACNE
     Dosage: 20 MG, TID, PO
     Route: 048
     Dates: start: 20060115, end: 20060710
  2. CELEXA [Concomitant]

REACTIONS (8)
  - ANGER [None]
  - CRYING [None]
  - DEPRESSION [None]
  - FATIGUE [None]
  - IRRITABILITY [None]
  - MOOD ALTERED [None]
  - SOCIAL AVOIDANT BEHAVIOUR [None]
  - SUICIDAL IDEATION [None]
